FAERS Safety Report 6042627-X (Version None)
Quarter: 2009Q1

REPORT INFORMATION
  Report Type: 
  Country: None (occurrence: None)
  Receive Date: 20090119
  Receipt Date: 20090112
  Transmission Date: 20090719
  Serious: Yes (Hospitalization)
  Sender: FDA-Public Use
  Company Number: US-TEVA-183652USA

PATIENT
  Sex: Female

DRUGS (1)
  1. QUININE SULFATE [Suspect]
     Indication: MUSCLE SPASMS
     Dates: start: 20041217, end: 20070821

REACTIONS (7)
  - ANXIETY [None]
  - BLOOD DISORDER [None]
  - EMOTIONAL DISORDER [None]
  - FEAR [None]
  - HAEMORRHAGE [None]
  - MULTIPLE INJURIES [None]
  - PAIN [None]
